FAERS Safety Report 7118536-1 (Version None)
Quarter: 2010Q4

REPORT INFORMATION
  Report Type: 
  Country: None (occurrence: None)
  Receive Date: 20101021
  Receipt Date: 20090612
  Transmission Date: 20110411
  Serious: Yes (Hospitalization, Other)
  Sender: FDA-Public Use
  Company Number: 2009BH009928

PATIENT
  Age: 45 Year
  Sex: Female
  Weight: 95 kg

DRUGS (9)
  1. GAMMAGARD [Suspect]
     Indication: HYPOGAMMAGLOBULINAEMIA
     Dosage: 40 MG;ONCE;IV
     Route: 042
     Dates: start: 20090604, end: 20090604
  2. SYMBICORT [Concomitant]
  3. ^DRACO^ [Concomitant]
  4. SINGULAIR [Concomitant]
  5. LISINOPRIL [Concomitant]
  6. HYDROCHLOROTHIAZIDE [Concomitant]
  7. AMBIEN [Concomitant]
  8. PRILOSEC [Concomitant]
  9. ZYFLO [Concomitant]

REACTIONS (3)
  - HEADACHE [None]
  - MENINGITIS ASEPTIC [None]
  - PYREXIA [None]
